FAERS Safety Report 18764853 (Version 1)
Quarter: 2021Q1

REPORT INFORMATION
  Report Type: Spontaneous
  Country: FR (occurrence: FR)
  Receive Date: 20210120
  Receipt Date: 20210120
  Transmission Date: 20210419
  Serious: Yes (Hospitalization)
  Sender: FDA-Public Use
  Company Number: FR-009507513-2101FRA006908

PATIENT
  Age: 74 Year
  Sex: Female

DRUGS (4)
  1. LOXAPAC (LOXAPINE SUCCINATE) [Concomitant]
     Active Substance: LOXAPINE SUCCINATE
     Dosage: 5 MILLIGRAM, PRN (5 MG IF NEEDED (3X/DAY MAX))
     Route: 048
     Dates: start: 20201116
  2. SERESTA [Concomitant]
     Active Substance: OXAZEPAM
     Dosage: DOSAGE INFORMATION: NOT REPORTED; 1/2 IN THE MORNING, 1/2 AT NOON, 1 IN THE EVENING
     Route: 048
     Dates: start: 20201116
  3. CLAMOXYL [Concomitant]
     Dosage: 2 DOSAGE FORM, QD
     Route: 048
     Dates: start: 20201116, end: 20201123
  4. NORSET [Suspect]
     Active Substance: MIRTAZAPINE
     Indication: DEMENTIA ALZHEIMER^S TYPE
     Dosage: 15 MILLIGRAM, QD; IN THE EVENING
     Route: 048
     Dates: start: 20201116, end: 20201226

REACTIONS (2)
  - Behaviour disorder [Recovered/Resolved]
  - Hallucination, visual [Recovering/Resolving]

NARRATIVE: CASE EVENT DATE: 20201123
